FAERS Safety Report 9701435 (Version 1)
Quarter: 2013Q4

REPORT INFORMATION
  Report Type: Spontaneous
  Country: US (occurrence: None)
  Receive Date: 20131120
  Receipt Date: 20131120
  Transmission Date: 20140711
  Serious: Yes (Hospitalization)
  Sender: FDA-Public Use
  Company Number: None

PATIENT
  Age: 62 None
  Sex: Male
  Weight: 104.2 kg

DRUGS (1)
  1. NITROGLYCERIN [Suspect]
     Indication: CARDIAC DISORDER
     Dosage: 0.4 MG PRN SUBLINGUAL
     Route: 060
     Dates: start: 19960124, end: 20120606

REACTIONS (4)
  - Angina pectoris [None]
  - Syncope [None]
  - Hypersensitivity [None]
  - Convulsion [None]
